FAERS Safety Report 5985740-5 (Version None)
Quarter: 2008Q4

REPORT INFORMATION
  Report Type: 
  Country: None (occurrence: None)
  Receive Date: 20081208
  Receipt Date: 20080331
  Transmission Date: 20090506
  Serious: No
  Sender: FDA-Public Use
  Company Number: US-AMGEN-KDL269422

PATIENT
  Sex: Female

DRUGS (3)
  1. ENBREL [Suspect]
     Indication: JUVENILE ARTHRITIS
     Route: 058
     Dates: start: 20071128
  2. METHOTREXATE [Concomitant]
     Route: 048
     Dates: start: 20070922
  3. NAPROSYN [Concomitant]

REACTIONS (7)
  - BACK PAIN [None]
  - CHILLS [None]
  - FATIGUE [None]
  - NECK PAIN [None]
  - OROPHARYNGEAL PAIN [None]
  - PAIN [None]
  - PAIN IN EXTREMITY [None]
